FAERS Safety Report 6716425-5 (Version None)
Quarter: 2010Q2

REPORT INFORMATION
  Report Type: 
  Country: None (occurrence: None)
  Receive Date: 20100507
  Receipt Date: 20100502
  Transmission Date: 20101027
  Serious: Yes (Hospitalization, Other)
  Sender: FDA-Public Use
  Company Number: CA-ABBOTT-09P-028-0576714-00

PATIENT
  Sex: Female
  Weight: 43 kg

DRUGS (2)
  1. HUMIRA [Suspect]
     Indication: CROHN'S DISEASE
     Route: 058
     Dates: start: 20070521
  2. CIPRO [Concomitant]
     Indication: DRUG USE FOR UNKNOWN INDICATION
     Dosage: PRE-SURGERY + 500 MG BID

REACTIONS (4)
  - ANAL STENOSIS [None]
  - INCISION SITE INFECTION [None]
  - LARGE INTESTINAL STRICTURE [None]
  - PAIN [None]
